FAERS Safety Report 7568003-6 (Version None)
Quarter: 2011Q2

REPORT INFORMATION
  Report Type: 
  Country: None (occurrence: None)
  Receive Date: 20110616
  Receipt Date: 20110208
  Transmission Date: 20111010
  Serious: Yes (Death)
  Sender: FDA-Public Use
  Company Number: FK201100198

PATIENT
  Age: 49 Year
  Sex: Female

DRUGS (4)
  1. ETOPOSIDE [Suspect]
     Indication: NON-HODGKIN'S LYMPHOMA
  2. CARMUSTINE [Suspect]
     Indication: NON-HODGKIN'S LYMPHOMA
  3. MELPHALAN HYDROCHLORIDE [Suspect]
     Indication: NON-HODGKIN'S LYMPHOMA
  4. CYTARABINE [Suspect]
     Indication: NON-HODGKIN'S LYMPHOMA

REACTIONS (7)
  - NEUTROPENIA [None]
  - JAUNDICE [None]
  - KLEBSIELLA SEPSIS [None]
  - TRICHOSPORON INFECTION [None]
  - SHOCK [None]
  - SKIN LESION [None]
  - PYREXIA [None]
